FAERS Safety Report 4443457-2 (Version None)
Quarter: 2004Q3

REPORT INFORMATION
  Report Type: 
  Country: None (occurrence: None)
  Receive Date: 20040908
  Receipt Date: 20040708
  Transmission Date: 20050211
  Serious: No
  Sender: FDA-Public Use
  Company Number: US-GLAXOSMITHKLINE-A0517413A

PATIENT
  Age: 6 Year
  Sex: Female

DRUGS (2)
  1. LAMICTAL [Suspect]
     Dosage: 25MG TWICE PER DAY
     Route: 048
     Dates: start: 20040501
  2. NO CONCURRENT MEDICATION [Concomitant]

REACTIONS (2)
  - CRYING [None]
  - IRRITABILITY [None]
